FAERS Safety Report 9133908 (Version 2)
Quarter: 2013Q1

REPORT INFORMATION
  Report Type: Other
  Country: JP (occurrence: JP)
  Receive Date: 20130303
  Receipt Date: 20130305
  Transmission Date: 20140127
  Serious: Yes (Hospitalization)
  Sender: FDA-Public Use
  Company Number: JP-BRISTOL-MYERS SQUIBB COMPANY-17426800

PATIENT
  Age: 7 Decade
  Sex: Female
  Weight: 40 kg

DRUGS (5)
  1. METGLUCO [Suspect]
     Route: 048
  2. LIRAGLUTIDE [Suspect]
     Dosage: INJ
     Route: 058
  3. GLIMEPIRIDE [Concomitant]
     Route: 048
  4. SITAGLIPTIN PHOSPHATE [Concomitant]
     Route: 048
  5. VOGLIBOSE [Concomitant]
     Route: 048

REACTIONS (2)
  - Nausea [Unknown]
  - Decreased appetite [Unknown]
